FAERS Safety Report 10996020 (Version 2)
Quarter: 2015Q2

REPORT INFORMATION
  Report Type: Spontaneous
  Country: DK (occurrence: DK)
  Receive Date: 20150407
  Receipt Date: 20150422
  Transmission Date: 20150821
  Serious: Yes (Life-Threatening, Hospitalization)
  Sender: FDA-Public Use
  Company Number: PHHY2015DK040845

PATIENT
  Age: 20 Month
  Sex: Female

DRUGS (5)
  1. PREDNISOLONE. [Suspect]
     Active Substance: PREDNISOLONE
     Indication: LYMPHOCYTIC LEUKAEMIA
     Dosage: 60 MG/M2, QD
     Route: 065
  2. VINCRISTINE [Suspect]
     Active Substance: VINCRISTINE
     Indication: LYMPHOCYTIC LEUKAEMIA
     Dosage: 2.0 MG/M2, QW
  3. METHOTREXATE [Suspect]
     Active Substance: METHOTREXATE
     Indication: LYMPHOCYTIC LEUKAEMIA
     Dosage: 10 MG, UNK
     Route: 037
  4. ASPARAGINASE [Concomitant]
     Active Substance: ASPARAGINASE
     Indication: ESCHERICHIA INFECTION
     Dosage: 6500 IU/M2, UNK
     Route: 065
  5. DOXORUBICIN [Suspect]
     Active Substance: DOXORUBICIN
     Indication: LYMPHOCYTIC LEUKAEMIA
     Route: 065

REACTIONS (19)
  - Hepatic failure [Unknown]
  - Conjunctivitis [Unknown]
  - Stomatitis [Unknown]
  - Febrile neutropenia [Unknown]
  - Bacteraemia [Unknown]
  - Lymphadenopathy [Unknown]
  - Cystitis [Unknown]
  - Haematuria [Unknown]
  - Enterococcal bacteraemia [Unknown]
  - Lymphopenia [Unknown]
  - Constipation [Unknown]
  - Hypogammaglobulinaemia [Unknown]
  - Adenovirus infection [Recovered/Resolved]
  - Fatigue [Unknown]
  - Leukocytosis [Unknown]
  - Diarrhoea [Unknown]
  - Tachycardia [Unknown]
  - Neuropathy peripheral [Unknown]
  - Pseudomonas infection [Unknown]
